FAERS Safety Report 8001636-1 (Version None)
Quarter: 2011Q4

REPORT INFORMATION
  Report Type: 
  Country: None (occurrence: None)
  Receive Date: 20111219
  Receipt Date: 20111212
  Transmission Date: 20120403
  Serious: Yes (Death)
  Sender: FDA-Public Use
  Company Number: DSA_48330_2011

PATIENT
  Sex: Male

DRUGS (14)
  1. DIFLUCAN [Concomitant]
  2. RENVELA [Concomitant]
  3. CELEXA [Concomitant]
  4. MECLIZINE [Concomitant]
  5. PRILOSEC [Concomitant]
  6. AMBIEN [Concomitant]
  7. REMERON [Concomitant]
  8. PREDNISONE TAB [Concomitant]
  9. XENAZINE [Suspect]
     Indication: HUNTINGTON'S DISEASE
     Dosage: (12.5 MG BID ORAL)
     Route: 048
     Dates: start: 20100416, end: 20111115
  10. LORTAB [Concomitant]
  11. GABAPENTIN [Concomitant]
  12. PLAVIX [Concomitant]
  13. MYSOLINE [Concomitant]
  14. GLYBURIDE [Concomitant]

REACTIONS (1)
  - DEATH [None]
